FAERS Safety Report 7920235-0 (Version None)
Quarter: 2011Q4

REPORT INFORMATION
  Report Type: 
  Country: None (occurrence: None)
  Receive Date: 20111117
  Receipt Date: 20111114
  Transmission Date: 20120403
  Serious: Yes (Death)
  Sender: FDA-Public Use
  Company Number: SK-PFIZER INC-2011274192

PATIENT
  Age: 68 Year
  Sex: Male
  Weight: 93 kg

DRUGS (20)
  1. SUNITINIB MALATE [Suspect]
     Dosage: 50 MG, UNK
     Dates: start: 20101118, end: 20101217
  2. SUNITINIB MALATE [Suspect]
     Dosage: 50 MG, UNK
     Dates: start: 20101228, end: 20110125
  3. ALLOPURINOL [Concomitant]
     Indication: HYPERURICAEMIA
     Dosage: UNK
     Dates: start: 20090101
  4. ISOSORBIDE MONONITRATE [Concomitant]
     Indication: MYOCARDIAL ISCHAEMIA
     Dosage: UNK
     Dates: start: 20090101
  5. RAMIPRIL [Concomitant]
     Indication: HYPERTENSION
     Dosage: UNK
     Dates: start: 20101004
  6. SUNITINIB MALATE [Suspect]
     Indication: RENAL CELL CARCINOMA
     Dosage: 50 MG, UNK
     Dates: start: 20101004, end: 20101102
  7. TICLOPIDINE [Concomitant]
     Indication: MYOCARDIAL ISCHAEMIA
     Dosage: UNK
     Dates: start: 20090101
  8. FUROSEMIDE [Concomitant]
     Indication: MYOCARDIAL ISCHAEMIA
     Dosage: UNK
     Dates: start: 20070101
  9. NEOSTIGMINE [Concomitant]
     Indication: CONSTIPATION
     Dosage: UNK
     Dates: start: 20100923
  10. OMEPRAZOLE [Concomitant]
     Indication: PROPHYLAXIS
  11. METAMIZOLE [Concomitant]
     Indication: PAIN
     Dosage: UNK
     Dates: start: 20100922
  12. HYDROCORTISONE [Concomitant]
     Dosage: UNK
     Dates: start: 19980101
  13. OXYCODONE [Concomitant]
     Indication: PAIN
     Dosage: UNK
     Dates: start: 20100922
  14. AMLODIPINE BESILATE [Concomitant]
     Indication: HYPERTENSION
     Dosage: UNK
     Dates: start: 20101019
  15. SUNITINIB MALATE [Suspect]
     Dosage: 37.5 MG, UNK
     Dates: start: 20110201
  16. DUTASTERIDE [Concomitant]
     Indication: BENIGN PROSTATIC HYPERPLASIA
     Dosage: UNK
     Dates: start: 20090101
  17. ZOLEDRONIC ACID [Concomitant]
     Indication: METASTASES TO BONE
     Dosage: UNK
     Dates: start: 20101118
  18. OMEPRAZOLE [Concomitant]
     Indication: DYSPEPSIA
     Dosage: UNK
     Dates: start: 19980101
  19. GINKGO BILOBA EXTRACT [Concomitant]
     Indication: PROPHYLAXIS
     Dosage: UNK
     Dates: start: 20090101
  20. MORPHINE [Concomitant]
     Indication: PAIN
     Dosage: UNK
     Dates: start: 20100922

REACTIONS (1)
  - CARDIOPULMONARY FAILURE [None]
